FAERS Safety Report 11700020 (Version 1)
Quarter: 2015Q4

REPORT INFORMATION
  Report Type: Spontaneous
  Country: US (occurrence: None)
  Receive Date: 20151104
  Receipt Date: 20151104
  Transmission Date: 20160304
  Serious: Yes (Hospitalization)
  Sender: FDA-Public Use
  Company Number: None

PATIENT
  Age: 73 Year
  Sex: Male
  Weight: 78.47 kg

DRUGS (15)
  1. LEVOTHYROXINE. [Concomitant]
     Active Substance: LEVOTHYROXINE
  2. SENNOSIDES. [Concomitant]
     Active Substance: SENNOSIDES
  3. FERROUS SULFATE [Concomitant]
     Active Substance: FERROUS SULFATE\FERROUS SULFATE, DRIED
  4. NYSTATIN. [Concomitant]
     Active Substance: NYSTATIN
  5. PROAIR HFA [Concomitant]
     Active Substance: ALBUTEROL SULFATE
  6. HYDROCORTIZONE [Concomitant]
     Active Substance: HYDROCORTISONE
  7. FAMOTIDINE. [Concomitant]
     Active Substance: FAMOTIDINE
  8. DENEPEZIL [Concomitant]
  9. ZETIA [Concomitant]
     Active Substance: EZETIMIBE
  10. ALBUTEROL SULFATE. [Concomitant]
     Active Substance: ALBUTEROL SULFATE
  11. SALINE NASAL SPRAY [Concomitant]
     Active Substance: SODIUM CHLORIDE
  12. AMLODIPINE BESYLATE. [Concomitant]
     Active Substance: AMLODIPINE BESYLATE
  13. TYLENOL [Concomitant]
     Active Substance: ACETAMINOPHEN
  14. ELIQUIS [Suspect]
     Active Substance: APIXABAN
     Indication: POSTOPERATIVE THROMBOSIS
     Dosage: ONE PILL TWICE A DAY ONE MORNING ONE NIGHT
     Route: 048
     Dates: start: 20150127, end: 20150904
  15. PANTOPRAZOLE SODIUM. [Concomitant]
     Active Substance: PANTOPRAZOLE SODIUM

REACTIONS (6)
  - Pulmonary embolism [None]
  - Therapy cessation [None]
  - Memory impairment [None]
  - Confusional state [None]
  - Delusion [None]
  - Abnormal behaviour [None]

NARRATIVE: CASE EVENT DATE: 20150904
